FAERS Safety Report 5236953-1 (Version None)
Quarter: 2007Q1

REPORT INFORMATION
  Report Type: 
  Country: None (occurrence: None)
  Receive Date: 20070213
  Receipt Date: 20070208
  Transmission Date: 20070707
  Serious: Yes (Other)
  Sender: FDA-Public Use
  Company Number: GBWYE600609FEB07

PATIENT
  Sex: Male

DRUGS (4)
  1. IBUPROFEN [Suspect]
     Dosage: OVERDOSE (DOSAGE NOT SPECIFIED)
     Dates: start: 20020406
  2. PAROXETINE HYDROCHLORIDE [Suspect]
     Dosage: UNKNOWN
  3. ETHANOL [Suspect]
     Dosage: 2 CANS OF LAGER
     Dates: start: 20020406
  4. ASPIRIN [Suspect]
     Dosage: OVERDOSE (DOSAGE NOT SPECIFIED)
     Dates: start: 20020406

REACTIONS (2)
  - INTENTIONAL OVERDOSE [None]
  - SUICIDE ATTEMPT [None]
